FAERS Safety Report 17729264 (Version 1)
Quarter: 2020Q2

REPORT INFORMATION
  Report Type: Spontaneous
  Country: US (occurrence: US)
  Receive Date: 20200430
  Receipt Date: 20200430
  Transmission Date: 20200714
  Serious: Yes (Other)
  Sender: FDA-Public Use
  Company Number: US-AMGEN-USASP2020068094

PATIENT
  Sex: Female

DRUGS (1)
  1. XGEVA [Suspect]
     Active Substance: DENOSUMAB
     Indication: LUNG NEOPLASM MALIGNANT
     Dosage: UNK
     Route: 065

REACTIONS (8)
  - Bone pain [Unknown]
  - Neck pain [Unknown]
  - Weight increased [Unknown]
  - Rash [Unknown]
  - Headache [Unknown]
  - Blindness [Unknown]
  - Myalgia [Unknown]
  - Nausea [Unknown]
